FAERS Safety Report 5179564-9 (Version None)
Quarter: 2006Q4

REPORT INFORMATION
  Report Type: 
  Country: None (occurrence: None)
  Receive Date: 20061219
  Receipt Date: 20061212
  Transmission Date: 20070319
  Serious: Yes (Other)
  Sender: FDA-Public Use
  Company Number: US-BOEHRINGER INGELHEIM PHARMACEUTICALS, INC.-2006-DE-06632GD

PATIENT
  Age: 64 Year
  Sex: Female

DRUGS (9)
  1. CLONIDINE [Suspect]
     Indication: HYPERTENSION
  2. CLONIDINE [Suspect]
  3. CLONIDINE [Suspect]
  4. FUROSEMIDE [Concomitant]
     Indication: HYPERTENSION
  5. METOPROLOL SUCCINATE [Concomitant]
     Indication: HYPERTENSION
  6. NITROGLYCERIN [Concomitant]
     Indication: HYPERTENSION
     Dosage: 2 INCH TOPICAL OINMENT
     Route: 061
  7. CAPTOPRIL [Concomitant]
     Indication: HYPERTENSION
  8. CAPTOPRIL [Concomitant]
  9. AMLODIPINE [Concomitant]
     Indication: HYPERTENSION

REACTIONS (3)
  - BLOOD PRESSURE DECREASED [None]
  - CHEST PAIN [None]
  - SECONDARY HYPERTENSION [None]
